FAERS Safety Report 10208936 (Version 1)
Quarter: 2014Q2

REPORT INFORMATION
  Report Type: Report from Study
  Country: US (occurrence: US)
  Receive Date: 20140530
  Receipt Date: 20140530
  Transmission Date: 20141212
  Serious: Yes (Other)
  Sender: FDA-Public Use
  Company Number: US-ABBVIE-14P-163-1240540-00

PATIENT
  Sex: Female

DRUGS (10)
  1. HUMIRA [Suspect]
     Indication: PSORIATIC ARTHROPATHY
  2. BUPROPION [Concomitant]
     Indication: ANTIDEPRESSANT THERAPY
  3. TRAZADONE [Concomitant]
     Indication: INSOMNIA
     Dosage: AT BEDTIME
  4. LAMICTAL [Concomitant]
     Indication: CONVULSION
  5. ABILIFY [Concomitant]
     Indication: ANTIDEPRESSANT THERAPY
  6. LYRICA [Concomitant]
     Indication: FIBROMYALGIA
  7. ADDERALL [Concomitant]
     Indication: AMNESIA
  8. OXYCONTIN [Concomitant]
     Indication: ARTHRALGIA
  9. OXYCONTIN [Concomitant]
  10. ESTRADIOL [Concomitant]
     Indication: HORMONE REPLACEMENT THERAPY

REACTIONS (10)
  - Convulsion [Not Recovered/Not Resolved]
  - Injection site pain [Unknown]
  - Psoriatic arthropathy [Unknown]
  - Gastric disorder [Unknown]
  - Arthritis [Unknown]
  - Pain in extremity [Unknown]
  - Arthralgia [Unknown]
  - Dysstasia [Unknown]
  - Musculoskeletal stiffness [Unknown]
  - Poor quality sleep [Unknown]
